FAERS Safety Report 20860132 (Version 1)
Quarter: 2022Q2

REPORT INFORMATION
  Report Type: Spontaneous
  Country: US (occurrence: None)
  Receive Date: 20220520
  Receipt Date: 20220520
  Transmission Date: 20220721
  Serious: Yes (Other)
  Sender: FDA-Public Use
  Company Number: None

PATIENT
  Age: 45 Year
  Sex: Female
  Weight: 76.5 kg

DRUGS (22)
  1. PAXLOVID [Suspect]
     Active Substance: NIRMATRELVIR\RITONAVIR
     Indication: COVID-19
     Dosage: FREQUENCY : TWICE A DAY;?
     Route: 048
     Dates: start: 20220504, end: 20220509
  2. XHANCE [Concomitant]
     Active Substance: FLUTICASONE PROPIONATE
  3. XANAX [Concomitant]
     Active Substance: ALPRAZOLAM
  4. liquid budesonide [Concomitant]
  5. ipratroprium bromide [Concomitant]
  6. ALBUTEROL SULFATE [Concomitant]
     Active Substance: ALBUTEROL SULFATE
  7. SINGULAIR [Concomitant]
     Active Substance: MONTELUKAST SODIUM
  8. AZELASTINE [Concomitant]
     Active Substance: AZELASTINE
  9. DOXYCYCLINE [Concomitant]
     Active Substance: DOXYCYCLINE
  10. BENZONATATE [Concomitant]
     Active Substance: BENZONATATE
  11. DEXAMETHASONE [Concomitant]
     Active Substance: DEXAMETHASONE
  12. SAXENDA [Concomitant]
     Active Substance: LIRAGLUTIDE
  13. ZINC [Concomitant]
     Active Substance: ZINC
  14. VITAMIN C [Concomitant]
     Active Substance: ASCORBIC ACID
  15. MAGNESIUM [Concomitant]
     Active Substance: MAGNESIUM
  16. ASPIRIN [Concomitant]
     Active Substance: ASPIRIN
  17. MUCINEX [Concomitant]
     Active Substance: GUAIFENESIN
  18. mitlivitamin [Concomitant]
  19. HERBALS\TURMERIC [Concomitant]
     Active Substance: HERBALS\TURMERIC
  20. GLUCOSAMINE [Concomitant]
     Active Substance: GLUCOSAMINE
  21. HERBALS [Concomitant]
     Active Substance: HERBALS
  22. immune gummy [Concomitant]

REACTIONS (6)
  - COVID-19 [None]
  - SARS-CoV-2 test positive [None]
  - Dyspnoea [None]
  - Asthma [None]
  - Dyspnoea [None]
  - Infection [None]

NARRATIVE: CASE EVENT DATE: 20220513
